FAERS Safety Report 5198398-2 (Version None)
Quarter: 2006Q4

REPORT INFORMATION
  Report Type: 
  Country: None (occurrence: None)
  Receive Date: 20061229
  Receipt Date: 20061226
  Transmission Date: 20070319
  Serious: Yes (Death)
  Sender: FDA-Public Use
  Company Number: 163-21880-06121143

PATIENT
  Age: 49 Year
  Sex: Male

DRUGS (1)
  1. REVLIMID [Suspect]
     Indication: MULTIPLE MYELOMA
     Dosage: 15 MG,  1 IN 1 D, ORAL
     Route: 048
     Dates: start: 20061017, end: 20060101

REACTIONS (1)
  - MULTIPLE MYELOMA [None]
